FAERS Safety Report 8028104-5 (Version None)
Quarter: 2012Q1

REPORT INFORMATION
  Report Type: 
  Country: None (occurrence: None)
  Receive Date: 20120106
  Receipt Date: 20120104
  Transmission Date: 20120608
  Serious: Yes (Other)
  Sender: FDA-Public Use
  Company Number: GB-ROCHE-1027222

PATIENT
  Age: 80 Year
  Sex: Male

DRUGS (9)
  1. ISOSORBIDE MONONITRATE [Concomitant]
     Route: 048
     Dates: start: 20110411
  2. ACETAMINOPHEN [Concomitant]
     Route: 048
     Dates: start: 20110922
  3. PROCHLORPERAZINE [Concomitant]
     Route: 048
     Dates: start: 20111216
  4. BISOPROLOL [Concomitant]
     Route: 048
     Dates: start: 20110216
  5. ORLISTAT [Suspect]
     Indication: PRODUCT USED FOR UNKNOWN INDICATION
     Route: 048
     Dates: start: 20110615
  6. ATORVASTATIN [Concomitant]
     Route: 048
     Dates: start: 20110430
  7. LANSOPRAZOLE [Concomitant]
     Route: 048
     Dates: start: 20110720
  8. ASPIRIN [Concomitant]
     Route: 048
     Dates: start: 20110216
  9. ACETAMINOPHEN AND CODEINE PHOSPHATE [Concomitant]
     Route: 048
     Dates: start: 20110411

REACTIONS (1)
  - MUSCLE SPASMS [None]
